FAERS Safety Report 18665970 (Version 1)
Quarter: 2020Q4

REPORT INFORMATION
  Report Type: Spontaneous
  Country: GB (occurrence: GB)
  Receive Date: 20201226
  Receipt Date: 20201226
  Transmission Date: 20210114
  Serious: Yes (Other)
  Sender: FDA-Public Use
  Company Number: GB-TEVA-2020-GB-1860846

PATIENT
  Age: 87 Year
  Sex: Male
  Weight: 61 kg

DRUGS (6)
  1. WARFARIN SODIUM. [Concomitant]
     Active Substance: WARFARIN SODIUM
     Dosage: TO BE TAKEN AS DIRECTED BY THE ANTIC...UNIT DOSE : 1 DOSAGE FORMS
     Dates: start: 20200131
  2. FUROSEMIDE. [Concomitant]
     Active Substance: FUROSEMIDE
     Dosage: 1 DOSAGE FORMS DAILY; EACH MORNING
     Dates: start: 20200131
  3. DOXYCYCLINE. [Suspect]
     Active Substance: DOXYCYCLINE
     Dosage: FOR 2WEEKS KEEP AS RESCUE...UNIT DOSE : 200 MG
     Dates: start: 20200131
  4. BISOPROLOL [Concomitant]
     Active Substance: BISOPROLOL
     Dosage: UNIT DOSE : 1 DOSAGE FORMS
     Dates: start: 20200131
  5. CARBOCISTEINE [Concomitant]
     Active Substance: CARBOCYSTEINE
     Dosage: FOR TWO WEEKS...UNIT DOSE : 6 DOSAGE FORMS
     Dates: start: 20200131
  6. FELODIPINE. [Concomitant]
     Active Substance: FELODIPINE
     Dosage: UNIT DOSE : 1 DOSAGE FORMS
     Dates: start: 20200131

REACTIONS (5)
  - Diarrhoea [Recovering/Resolving]
  - Headache [Unknown]
  - Abdominal pain upper [Unknown]
  - Hyperaesthesia teeth [Recovering/Resolving]
  - Tooth discolouration [Not Recovered/Not Resolved]

NARRATIVE: CASE EVENT DATE: 20201126
